FAERS Safety Report 11263565 (Version 1)
Quarter: 2015Q3

REPORT INFORMATION
  Report Type: Report from Study
  Country: AU (occurrence: AU)
  Receive Date: 20150713
  Receipt Date: 20150713
  Transmission Date: 20151125
  Serious: Yes (Hospitalization)
  Sender: FDA-Public Use
  Company Number: AU-ROCHE-1605320

PATIENT
  Age: 75 Year
  Sex: Female

DRUGS (3)
  1. ACTEMRA [Suspect]
     Active Substance: TOCILIZUMAB
     Indication: RHEUMATOID ARTHRITIS
     Route: 042
     Dates: start: 20141223
  2. ZOLOFT [Concomitant]
     Active Substance: SERTRALINE HYDROCHLORIDE
     Indication: ANXIETY
     Dosage: 75-100 MG
     Route: 048
     Dates: start: 201407
  3. WARFARIN [Concomitant]
     Active Substance: WARFARIN
     Indication: PULMONARY EMBOLISM
     Route: 048
     Dates: start: 20140613

REACTIONS (1)
  - Pulmonary embolism [Recovering/Resolving]

NARRATIVE: CASE EVENT DATE: 20150613
